FAERS Safety Report 4421710-6 (Version None)
Quarter: 2004Q3

REPORT INFORMATION
  Report Type: 
  Country: None (occurrence: None)
  Receive Date: 20040806
  Receipt Date: 20040722
  Transmission Date: 20050211
  Serious: Yes (Death, Other)
  Sender: FDA-Public Use
  Company Number: USA040772281

PATIENT
  Age: 61 Year
  Sex: Male

DRUGS (1)
  1. FORTEO [Suspect]
     Dates: start: 20030601

REACTIONS (3)
  - ADENOSQUAMOUS CELL LUNG CANCER [None]
  - LUNG TRANSPLANT [None]
  - RESPIRATORY FAILURE [None]
